FAERS Safety Report 24113162 (Version 2)
Quarter: 2024Q3

REPORT INFORMATION
  Report Type: Spontaneous
  Country: US (occurrence: US)
  Receive Date: 20240719
  Receipt Date: 20240821
  Transmission Date: 20241017
  Serious: Yes (Other)
  Sender: PURDUE
  Company Number: US-PURDUE PHARMA-USA-2024-0310834

PATIENT
  Age: 70 Year
  Sex: Female

DRUGS (1)
  1. OXYCONTIN [Suspect]
     Active Substance: OXYCODONE HYDROCHLORIDE
     Indication: Product used for unknown indication
     Dosage: 60 PLUS MG DAY
     Route: 048

REACTIONS (5)
  - Apnoea [Unknown]
  - Frustration tolerance decreased [Unknown]
  - Anxiety [Unknown]
  - Amnesia [Unknown]
  - Sleep apnoea syndrome [Unknown]
